FAERS Safety Report 24234253 (Version 1)
Quarter: 2024Q3

REPORT INFORMATION
  Report Type: Spontaneous
  Country: CN (occurrence: None)
  Receive Date: 20240821
  Receipt Date: 20240821
  Transmission Date: 20241017
  Serious: Yes (Other)
  Sender: ASTRAZENECA
  Company Number: 2024A186767

PATIENT
  Age: 21865 Day
  Sex: Male

DRUGS (6)
  1. CRESTOR [Suspect]
     Active Substance: ROSUVASTATIN CALCIUM
     Indication: Cerebrovascular disorder
     Route: 048
     Dates: start: 20240723, end: 20240805
  2. VALPROATE SODIUM [Suspect]
     Active Substance: VALPROATE SODIUM
     Indication: Cerebrovascular disorder
     Route: 042
     Dates: start: 20240707, end: 20240711
  3. EPILIM [Suspect]
     Active Substance: VALPROATE SODIUM
     Indication: Cerebrovascular disorder
     Route: 048
     Dates: start: 20240711, end: 20240723
  4. EPILIM [Suspect]
     Active Substance: VALPROATE SODIUM
     Indication: Cerebrovascular disorder
     Route: 048
     Dates: start: 20240723, end: 20240805
  5. LIPITOR [Suspect]
     Active Substance: ATORVASTATIN CALCIUM
     Indication: Cerebrovascular disorder
     Route: 048
     Dates: start: 20240711, end: 20240723
  6. ATORVASTATIN CALCIUM [Concomitant]
     Active Substance: ATORVASTATIN CALCIUM
     Indication: Cerebrovascular disorder
     Route: 048
     Dates: start: 20240707, end: 20240711

REACTIONS (2)
  - Transaminases increased [Recovering/Resolving]
  - Liver injury [Unknown]

NARRATIVE: CASE EVENT DATE: 20240726
